FAERS Safety Report 11589388 (Version 1)
Quarter: 2015Q4

REPORT INFORMATION
  Report Type: Spontaneous
  Country: US (occurrence: None)
  Receive Date: 20151001
  Receipt Date: 20151001
  Transmission Date: 20160304
  Serious: No
  Sender: FDA-Public Use
  Company Number: None

PATIENT
  Age: 47 Year
  Sex: Female

DRUGS (1)
  1. LUPRON [Suspect]
     Active Substance: LEUPROLIDE ACETATE
     Indication: ENDOMETRIOSIS
     Dosage: 11.25MG?Q 3 MONTHS?IM
     Route: 030
     Dates: start: 20150706

REACTIONS (1)
  - Hot flush [None]

NARRATIVE: CASE EVENT DATE: 20150901
